FAERS Safety Report 9182049 (Version 2)
Quarter: 2013Q4

REPORT INFORMATION
  Report Type: Spontaneous
  Country: BR (occurrence: BR)
  Receive Date: 20130322
  Receipt Date: 20131022
  Transmission Date: 20140711
  Serious: Yes (Other)
  Sender: FDA-Public Use
  Company Number: PHHY2013BR026378

PATIENT
  Age: 75 Year
  Sex: Female

DRUGS (8)
  1. TRILEPTAL [Suspect]
     Indication: CONVULSION
     Dosage: 2.5 DF, DAILY
     Route: 048
  2. HYDROCHLOROTHIAZIDE [Suspect]
     Indication: BLOOD PRESSURE INCREASED
     Dosage: 1 DF, DAILY
     Route: 048
  3. LOSARTAN [Suspect]
     Dosage: UNK UKN, UNK
  4. FUROSEMIDE [Suspect]
     Dosage: TWICE A WEEK
  5. HIDANTAL [Suspect]
     Indication: CONVULSION
     Dosage: 1 DF, QD
     Route: 048
  6. VASOPRIL /BRA/ [Suspect]
     Indication: HYPERTENSION
     Dosage: 2 DF, QD
     Route: 048
  7. CORAM [Suspect]
     Indication: FLUID RETENTION
     Dosage: 2 DF, QD
     Route: 048
  8. ABLOK [Suspect]
     Indication: FLUID RETENTION
     Dosage: 2 DF, QD
     Route: 048

REACTIONS (9)
  - Convulsion [Recovered/Resolved]
  - Confusional state [Recovered/Resolved]
  - Agitation [Recovered/Resolved]
  - Pollakiuria [Unknown]
  - Tremor [Recovered/Resolved]
  - Blood pressure increased [Recovering/Resolving]
  - Swelling [Not Recovered/Not Resolved]
  - Fluid retention [Not Recovered/Not Resolved]
  - Asthenia [Recovering/Resolving]
